FAERS Safety Report 5118891-8 (Version None)
Quarter: 2006Q3

REPORT INFORMATION
  Report Type: 
  Country: None (occurrence: None)
  Receive Date: 20060926
  Receipt Date: 20060912
  Transmission Date: 20061208
  Serious: Yes (Hospitalization, Other)
  Sender: FDA-Public Use
  Company Number: 2006BH013352

PATIENT
  Age: 2 Year
  Sex: 0

DRUGS (1)
  1. BUMINATE 5% [Suspect]
     Indication: SURGERY

REACTIONS (1)
  - LATEX ALLERGY [None]
